FAERS Safety Report 13244216 (Version 1)
Quarter: 2017Q1

REPORT INFORMATION
  Report Type: Spontaneous
  Country: US (occurrence: US)
  Receive Date: 20170217
  Receipt Date: 20170217
  Transmission Date: 20170428
  Serious: Yes (Hospitalization)
  Sender: FDA-Public Use
  Company Number: US-009507513-1702USA006026

PATIENT
  Age: 70 Year
  Sex: Female
  Weight: 56.24 kg

DRUGS (6)
  1. LIPITOR [Concomitant]
     Active Substance: ATORVASTATIN CALCIUM
     Dosage: UNK
  2. VITAMIN D [Concomitant]
     Active Substance: CHOLECALCIFEROL
     Dosage: UNK
  3. TAMOXIFEN [Concomitant]
     Active Substance: TAMOXIFEN
     Dosage: UNK
  4. BELSOMRA [Suspect]
     Active Substance: SUVOREXANT
     Indication: INITIAL INSOMNIA
     Dosage: UNK
     Route: 048
     Dates: start: 20151218, end: 20151229
  5. CALCIUM CITRATE [Concomitant]
     Active Substance: CALCIUM CITRATE
     Dosage: UNK
  6. PHENAZOPYRIDINE HYDROCHLORIDE. [Concomitant]
     Active Substance: PHENAZOPYRIDINE HYDROCHLORIDE
     Dosage: UNK

REACTIONS (11)
  - Diarrhoea [Not Recovered/Not Resolved]
  - Eye contusion [Not Recovered/Not Resolved]
  - Nausea [Not Recovered/Not Resolved]
  - Incoherent [Not Recovered/Not Resolved]
  - Intentional product use issue [Unknown]
  - Malaise [Not Recovered/Not Resolved]
  - Dehydration [Not Recovered/Not Resolved]
  - Fall [Not Recovered/Not Resolved]
  - Head injury [Not Recovered/Not Resolved]
  - Loss of consciousness [Not Recovered/Not Resolved]
  - Feeling abnormal [Not Recovered/Not Resolved]

NARRATIVE: CASE EVENT DATE: 20151229
